FAERS Safety Report 10661438 (Version 1)
Quarter: 2014Q4

REPORT INFORMATION
  Report Type: Spontaneous
  Country: JP (occurrence: JP)
  Receive Date: 20141218
  Receipt Date: 20141218
  Transmission Date: 20150529
  Serious: Yes (Hospitalization)
  Sender: FDA-Public Use
  Company Number: JP-SA-2014SA170125

PATIENT
  Age: 26 Year
  Sex: Female
  Weight: 47.2 kg

DRUGS (2)
  1. GONADOTROPINS [Suspect]
     Active Substance: GONADOTROPIN, SERUM
     Indication: PROPHYLAXIS OF ABORTION
     Dosage: 8 TIMES
     Route: 030
     Dates: start: 19930601, end: 19930708
  2. CLOMIFENE CITRATE [Suspect]
     Active Substance: CLOMIPHENE
     Indication: PROPHYLAXIS OF ABORTION
     Route: 065
     Dates: start: 19930627, end: 19930708

REACTIONS (19)
  - Aspartate aminotransferase increased [Recovered/Resolved]
  - Hepatic enzyme increased [Recovered/Resolved]
  - Abortion spontaneous [None]
  - Hepatosplenomegaly [None]
  - Abdominal pain upper [Recovered/Resolved]
  - Chromaturia [Recovered/Resolved]
  - Blood bilirubin increased [Recovered/Resolved]
  - Off label use [None]
  - Oestradiol abnormal [Recovering/Resolving]
  - Product use issue [Unknown]
  - Exposure during pregnancy [Unknown]
  - Alanine aminotransferase increased [Recovered/Resolved]
  - Abdominal distension [Recovered/Resolved]
  - Foetal death [None]
  - Ovarian hyperstimulation syndrome [Recovering/Resolving]
  - Liver injury [Recovered/Resolved]
  - Vomiting [Recovered/Resolved]
  - Ascites [Recovered/Resolved]
  - Platelet count decreased [Unknown]

NARRATIVE: CASE EVENT DATE: 19930709
